FAERS Safety Report 6140564-3 (Version None)
Quarter: 2009Q2

REPORT INFORMATION
  Report Type: 
  Country: None (occurrence: None)
  Receive Date: 20090402
  Receipt Date: 20090324
  Transmission Date: 20091009
  Serious: Yes (Hospitalization)
  Sender: FDA-Public Use
  Company Number: PHEH2009US01391

PATIENT
  Sex: Female
  Weight: 105 kg

DRUGS (5)
  1. METHERGINE [Suspect]
     Indication: UTERINE ATONY
     Dosage: UNK, UNK
     Route: 030
     Dates: start: 20090123, end: 20090123
  2. VITAMIN TAB [Concomitant]
     Indication: PRENATAL CARE
     Route: 048
     Dates: start: 20080711, end: 20090320
  3. REPLIVA 21/7 [Concomitant]
  4. GLYBURIDE [Concomitant]
     Indication: GESTATIONAL DIABETES
     Dosage: 5 MG, UNK
     Route: 048
     Dates: start: 20081219, end: 20090123
  5. IRON SULFATETHIAMIN COMPOUND TAB [Concomitant]
     Indication: PREGNANCY
     Dosage: 325 MG, UNK
     Route: 048
     Dates: start: 20081031, end: 20090123

REACTIONS (2)
  - HYSTERECTOMY [None]
  - UTERINE ATONY [None]
